FAERS Safety Report 10574772 (Version 1)
Quarter: 2014Q4

REPORT INFORMATION
  Report Type: Spontaneous
  Country: US (occurrence: US)
  Receive Date: 20141110
  Receipt Date: 20141110
  Transmission Date: 20150529
  Serious: Yes (Other)
  Sender: FDA-Public Use
  Company Number: ALCN2014US006045

PATIENT
  Sex: Male

DRUGS (3)
  1. VALTREX [Concomitant]
     Active Substance: VALACYCLOVIR HYDROCHLORIDE
     Indication: HERPES ZOSTER
     Route: 048
  2. VIGAMOX [Suspect]
     Active Substance: MOXIFLOXACIN HYDROCHLORIDE
     Indication: RETINAL OPERATION
     Dosage: 1 GTT, QID
     Route: 047
     Dates: start: 20140909
  3. DUREZOL [Suspect]
     Active Substance: DIFLUPREDNATE
     Indication: HERPES ZOSTER
     Dosage: 1 GTT, QID
     Route: 047
     Dates: start: 20140701

REACTIONS (2)
  - Visual acuity reduced [Not Recovered/Not Resolved]
  - Retinal detachment [Recovered/Resolved]
